FAERS Safety Report 5750201-5 (Version None)
Quarter: 2008Q2

REPORT INFORMATION
  Report Type: 
  Country: None (occurrence: None)
  Receive Date: 20080522
  Receipt Date: 20080522
  Transmission Date: 20081010
  Serious: Yes (Hospitalization)
  Sender: FDA-Public Use
  Company Number: None

PATIENT
  Sex: Male
  Weight: 112 kg

DRUGS (20)
  1. TARCEVA [Suspect]
     Indication: PANCREATIC CARCINOMA
     Dosage: 100 MG EVERY DAY PO
     Route: 048
     Dates: start: 20080414, end: 20080515
  2. PRANDIN [Concomitant]
  3. CLONIDINE [Concomitant]
  4. LISINIPRIL [Concomitant]
  5. PROTONIX [Concomitant]
  6. GLUCOPHAGE [Concomitant]
  7. FUROSEMIDE [Concomitant]
  8. POTASSIUM CHLORIDE [Concomitant]
  9. PANGESTYME CAPS [Concomitant]
  10. ASPIRIN [Concomitant]
  11. COMPAZINE [Concomitant]
  12. CLONIDINE [Concomitant]
  13. XELODA [Concomitant]
  14. HYDROCORTISONE CREAM [Concomitant]
  15. CLEOCIN GEL [Concomitant]
  16. OXYCODONE HCL [Concomitant]
  17. IMODIUM [Concomitant]
  18. TYLENOL [Concomitant]
  19. CIPROFLOXACIN HCL [Concomitant]
  20. VANTIN (CEFPODOXINE) [Concomitant]

REACTIONS (4)
  - BLOOD BILIRUBIN INCREASED [None]
  - ESCHERICHIA BACTERAEMIA [None]
  - JAUNDICE [None]
  - PYREXIA [None]
